FAERS Safety Report 23177701 (Version 1)
Quarter: 2023Q4

REPORT INFORMATION
  Report Type: Spontaneous
  Country: US (occurrence: US)
  Receive Date: 20231113
  Receipt Date: 20231113
  Transmission Date: 20240109
  Serious: No
  Sender: FDA-Public Use
  Company Number: US-TAKEDA-2023TUS109763

PATIENT
  Age: 33 Year
  Sex: Female
  Weight: 54 kg

DRUGS (2)
  1. VYVANSE [Suspect]
     Active Substance: LISDEXAMFETAMINE DIMESYLATE
     Indication: Attention deficit hyperactivity disorder
     Dosage: 30 MILLIGRAM, QD
     Route: 065
  2. LEXAPROFEN [Concomitant]
     Dosage: UNK
     Route: 065

REACTIONS (1)
  - Epistaxis [Unknown]
